FAERS Safety Report 6878335-2 (Version None)
Quarter: 2010Q3

REPORT INFORMATION
  Report Type: 
  Country: None (occurrence: None)
  Receive Date: 20100728
  Receipt Date: 20100719
  Transmission Date: 20110219
  Serious: Yes (Other)
  Sender: FDA-Public Use
  Company Number: US-JNJFOC-20100706869

PATIENT
  Sex: Female
  Weight: 50.35 kg

DRUGS (5)
  1. DURAGESIC-100 [Suspect]
     Indication: PAIN
     Route: 062
  2. DURAGESIC-100 [Suspect]
     Route: 062
  3. DESYREL [Concomitant]
     Indication: SLEEP DISORDER
     Route: 048
  4. LORTAB [Concomitant]
     Indication: BREAKTHROUGH PAIN
     Route: 048
  5. PROAIR HFA [Concomitant]
     Indication: ASTHMA
     Route: 055

REACTIONS (7)
  - ANGER [None]
  - DEPRESSION [None]
  - DISTURBANCE IN SOCIAL BEHAVIOUR [None]
  - DYSPEPSIA [None]
  - PANIC ATTACK [None]
  - SCREAMING [None]
  - VITAMIN D DEFICIENCY [None]
